FAERS Safety Report 4450734-8 (Version None)
Quarter: 2004Q3

REPORT INFORMATION
  Report Type: 
  Country: None (occurrence: None)
  Receive Date: 20040914
  Receipt Date: 20040914
  Transmission Date: 20050211
  Serious: No
  Sender: FDA-Public Use
  Company Number: None

PATIENT
  Age: 55 Year
  Sex: Male
  Weight: 119.296 kg

DRUGS (1)
  1. METFORMIN 1000 MG BID HS502 [Suspect]

REACTIONS (4)
  - BLOOD CREATININE INCREASED [None]
  - BLOOD LACTIC ACID INCREASED [None]
  - HYPERKALAEMIA [None]
  - THERAPY NON-RESPONDER [None]
